FAERS Safety Report 5120146-2 (Version None)
Quarter: 2006Q4

REPORT INFORMATION
  Report Type: 
  Country: None (occurrence: None)
  Receive Date: 20061002
  Receipt Date: 20061002
  Transmission Date: 20070319
  Serious: Yes (Death, Life-Threatening, Hospitalization)
  Sender: FDA-Public Use
  Company Number: None

PATIENT
  Age: 79 Year
  Sex: Male
  Weight: 65.7716 kg

DRUGS (1)
  1. FOSAMAX [Suspect]
     Indication: RESORPTION BONE INCREASED
     Dosage: ONCE A WEEK PO
     Route: 048

REACTIONS (1)
  - OESOPHAGEAL CARCINOMA [None]
